FAERS Safety Report 21314591 (Version 3)
Quarter: 2022Q4

REPORT INFORMATION
  Report Type: Spontaneous
  Country: MX (occurrence: MX)
  Receive Date: 20220909
  Receipt Date: 20221013
  Transmission Date: 20230112
  Serious: Yes (Death, Hospitalization, Other)
  Sender: FDA-Public Use
  Company Number: MX-BAYER-2022P013787

PATIENT
  Age: 3 Year
  Sex: Female

DRUGS (1)
  1. LAROTRECTINIB [Suspect]
     Active Substance: LAROTRECTINIB
     Indication: Glioma
     Dosage: 50 MG, BID
     Route: 048
     Dates: start: 20220513, end: 20220819

REACTIONS (7)
  - Intracranial pressure increased [Fatal]
  - Glioma [None]
  - Ventriculo-peritoneal shunt [None]
  - Post procedural complication [None]
  - Mutism [None]
  - Condition aggravated [None]
  - Oedema [None]

NARRATIVE: CASE EVENT DATE: 20220819
